FAERS Safety Report 19139858 (Version 1)
Quarter: 2021Q2

REPORT INFORMATION
  Report Type: Spontaneous
  Country: US (occurrence: US)
  Receive Date: 20210415
  Receipt Date: 20210415
  Transmission Date: 20210717
  Serious: Yes (Hospitalization)
  Sender: FDA-Public Use
  Company Number: None

PATIENT
  Age: 80 Year
  Sex: Male
  Weight: 97 kg

DRUGS (1)
  1. CEFTRIAXONE (CEFTRIAXONE NA 1GM/VIL INJ) [Suspect]
     Active Substance: CEFTRIAXONE SODIUM
     Indication: PROSTATITIS
     Dosage: ?          OTHER ROUTE:IV?
     Dates: start: 20210329, end: 20210329

REACTIONS (9)
  - Stevens-Johnson syndrome [None]
  - Chronic obstructive pulmonary disease [None]
  - Atrial fibrillation [None]
  - Cognitive disorder [None]
  - Erythema multiforme [None]
  - Chronic kidney disease [None]
  - Hypersensitivity [None]
  - Coronary artery disease [None]
  - Toxic epidermal necrolysis [None]

NARRATIVE: CASE EVENT DATE: 20210403
